FAERS Safety Report 7826007-X (Version None)
Quarter: 2011Q4

REPORT INFORMATION
  Report Type: 
  Country: None (occurrence: None)
  Receive Date: 20111019
  Receipt Date: 20111010
  Transmission Date: 20120403
  Serious: Yes (Other)
  Sender: FDA-Public Use
  Company Number: US-ASTRAZENECA-2011SE54559

PATIENT
  Age: 77 Year
  Sex: Female
  Weight: 57.2 kg

DRUGS (2)
  1. LIPITOR [Concomitant]
  2. CRESTOR [Suspect]
     Route: 048
     Dates: start: 20080101, end: 20110101

REACTIONS (2)
  - SQUAMOUS CELL CARCINOMA [None]
  - DRUG INTOLERANCE [None]
